FAERS Safety Report 11936543 (Version 1)
Quarter: 2016Q1

REPORT INFORMATION
  Report Type: Spontaneous
  Country: US (occurrence: US)
  Receive Date: 20160121
  Receipt Date: 20160121
  Transmission Date: 20160526
  Serious: No
  Sender: FDA-Public Use
  Company Number: US-TARO-2015TAR00974

PATIENT
  Age: 79 Year
  Sex: Female
  Weight: 90.7 kg

DRUGS (1)
  1. MOMETASONE FUROATE CREAM USP 0.1% [Suspect]
     Active Substance: MOMETASONE FUROATE
     Indication: PRURITUS
     Dosage: UNK UNK, 1X/DAY
     Route: 061
     Dates: start: 201508

REACTIONS (1)
  - Drug ineffective [Not Recovered/Not Resolved]

NARRATIVE: CASE EVENT DATE: 201508
